FAERS Safety Report 4602001-7 (Version None)
Quarter: 2005Q1

REPORT INFORMATION
  Report Type: 
  Country: None (occurrence: None)
  Receive Date: 20050215
  Receipt Date: 20041020
  Transmission Date: 20050727
  Serious: Yes (Other)
  Sender: FDA-Public Use
  Company Number: 383990

PATIENT
  Age: 44 Year
  Sex: Female

DRUGS (3)
  1. PEGASYS [Suspect]
     Dosage: OTHER
     Route: 050
     Dates: start: 20040715
  2. COPEGUS [Suspect]
     Dosage: ORAL
     Route: 048
     Dates: start: 20040715
  3. LEXAPRO [Concomitant]

REACTIONS (7)
  - CONTUSION [None]
  - FATIGUE [None]
  - HAIR COLOUR CHANGES [None]
  - INSOMNIA [None]
  - PLATELET COUNT DECREASED [None]
  - RASH [None]
  - WEIGHT DECREASED [None]
